FAERS Safety Report 20310346 (Version 2)
Quarter: 2022Q1

REPORT INFORMATION
  Report Type: Spontaneous
  Country: CN (occurrence: None)
  Receive Date: 20220107
  Receipt Date: 20220118
  Transmission Date: 20220423
  Serious: Yes (Hospitalization, Other)
  Sender: FDA-Public Use
  Company Number: 2022A004757

PATIENT
  Age: 36 Year
  Sex: Male
  Weight: 83 kg

DRUGS (6)
  1. IMFINZI [Suspect]
     Active Substance: DURVALUMAB
     Indication: Small cell lung cancer extensive stage
     Dosage: 1000MG / CYCLE
     Route: 042
     Dates: start: 20210908, end: 20210908
  2. ETOPOSIDE [Concomitant]
     Active Substance: ETOPOSIDE
     Indication: Small cell lung cancer extensive stage
     Dates: start: 20210908
  3. CARBOPLATIN [Concomitant]
     Active Substance: CARBOPLATIN
     Indication: Small cell lung cancer extensive stage
     Dates: start: 20210908
  4. CISPLATIN [Concomitant]
     Active Substance: CISPLATIN
     Indication: Small cell lung cancer extensive stage
     Dates: start: 20210908
  5. LOBAPLATIN (TRANSLITERATION) [Concomitant]
     Route: 065
  6. PACLITAXEL -ALBUMIN [Concomitant]
     Route: 065

REACTIONS (1)
  - Immune-mediated lung disease [Recovering/Resolving]
